FAERS Safety Report 9280445 (Version 1)
Quarter: 2013Q2

REPORT INFORMATION
  Report Type: Spontaneous
  Country: US (occurrence: US)
  Receive Date: 20130509
  Receipt Date: 20130509
  Transmission Date: 20140414
  Serious: Yes (Hospitalization)
  Sender: FDA-Public Use
  Company Number: US-UCBSA-085065

PATIENT
  Age: 22 Year
  Sex: Female

DRUGS (4)
  1. LEVETIRACETAM [Suspect]
     Indication: CONVULSION
     Dosage: UNKNOWN DOSE
  2. DILANTIN [Suspect]
     Indication: CONVULSION
     Dosage: UNKNOWN DOSE
  3. TYLENOL [Concomitant]
     Indication: PYREXIA
  4. MORPHINE [Concomitant]
     Indication: PAIN

REACTIONS (1)
  - Drug reaction with eosinophilia and systemic symptoms [Recovered/Resolved]
